FAERS Safety Report 14514646 (Version 1)
Quarter: 2018Q1

REPORT INFORMATION
  Report Type: Spontaneous
  Country: US (occurrence: US)
  Receive Date: 20180209
  Receipt Date: 20180209
  Transmission Date: 20180509
  Serious: Yes (Disabling, Other)
  Sender: FDA-Public Use
  Company Number: US-REGENERON PHARMACEUTICALS, INC.-2018-12866

PATIENT

DRUGS (2)
  1. EYLEA [Suspect]
     Active Substance: AFLIBERCEPT
     Indication: NEOVASCULAR AGE-RELATED MACULAR DEGENERATION
     Dosage: UNK
  2. EYLEA [Suspect]
     Active Substance: AFLIBERCEPT
     Dosage: LAST INJECTION PRIOR TO THE EVENT, UNK
     Dates: start: 20180124, end: 20180124

REACTIONS (10)
  - Anterior chamber cell [Not Recovered/Not Resolved]
  - Eye pain [Unknown]
  - Vitreous floaters [Not Recovered/Not Resolved]
  - Ocular discomfort [Unknown]
  - Blindness [Not Recovered/Not Resolved]
  - Eye inflammation [Unknown]
  - Vitreal cells [Not Recovered/Not Resolved]
  - Vitreous haze [Not Recovered/Not Resolved]
  - Vision blurred [Unknown]
  - Lacrimation increased [Unknown]

NARRATIVE: CASE EVENT DATE: 201801
